FAERS Safety Report 11118273 (Version 1)
Quarter: 2015Q2

REPORT INFORMATION
  Report Type: Spontaneous
  Country: GB (occurrence: GB)
  Receive Date: 20150518
  Receipt Date: 20150518
  Transmission Date: 20150821
  Serious: Yes (Life-Threatening, Hospitalization)
  Sender: FDA-Public Use
  Company Number: GB-JNJFOC-20150503545

PATIENT
  Age: 19 Year
  Sex: Male

DRUGS (1)
  1. FENTANYL. [Suspect]
     Active Substance: FENTANYL
     Indication: ECZEMA
     Route: 062

REACTIONS (7)
  - Accidental overdose [Unknown]
  - Drug diversion [Unknown]
  - Unresponsive to stimuli [Recovered/Resolved]
  - Toxicity to various agents [Recovered/Resolved]
  - Rash macular [Recovered/Resolved]
  - Drug administered at inappropriate site [Unknown]
  - Swelling face [Recovered/Resolved]
